FAERS Safety Report 4623106-0 (Version None)
Quarter: 2005Q1

REPORT INFORMATION
  Report Type: 
  Country: None (occurrence: None)
  Receive Date: 20050328
  Receipt Date: 20050328
  Transmission Date: 20050727
  Serious: Yes (Life-Threatening)
  Sender: FDA-Public Use
  Company Number: None

PATIENT
  Sex: Male
  Weight: 71.6683 kg

DRUGS (1)
  1. PROTOPIC [Suspect]
     Indication: DERMATITIS ATOPIC
     Dosage: TWO TO THREE DAILY  TOPICAL
     Route: 061
     Dates: start: 20020106, end: 20020602

REACTIONS (4)
  - COUGH [None]
  - HODGKIN'S DISEASE [None]
  - NASOPHARYNGITIS [None]
  - VIRAL INFECTION [None]
